FAERS Safety Report 4784152-X (Version None)
Quarter: 2005Q3

REPORT INFORMATION
  Report Type: 
  Country: None (occurrence: None)
  Receive Date: 20050930
  Receipt Date: 20050801
  Transmission Date: 20060218
  Serious: Yes (Disabling)
  Sender: FDA-Public Use
  Company Number: US-GLAXOSMITHKLINE-A0568472A

PATIENT
  Age: 70 Year
  Sex: Female
  Weight: 89.1 kg

DRUGS (4)
  1. FLOVENT [Suspect]
     Indication: ASTHMA
     Dosage: 2PUFF TWICE PER DAY
     Route: 055
     Dates: start: 20050718, end: 20050719
  2. FLOVENT [Suspect]
     Dosage: 2PUFF TWICE PER DAY
     Route: 055
  3. PROVENTIL [Concomitant]
  4. ACCOLATE [Concomitant]

REACTIONS (4)
  - CHEST DISCOMFORT [None]
  - DYSPHONIA [None]
  - DYSPNOEA [None]
  - ORAL PAIN [None]
